FAERS Safety Report 17487026 (Version 1)
Quarter: 2020Q1

REPORT INFORMATION
  Report Type: Spontaneous
  Country: US (occurrence: US)
  Receive Date: 20200303
  Receipt Date: 20200303
  Transmission Date: 20200409
  Serious: No
  Sender: FDA-Public Use
  Company Number: US-TORRENT-00010045

PATIENT
  Age: 80 Year
  Sex: Female
  Weight: 80 kg

DRUGS (4)
  1. LISINOPRIL. [Concomitant]
     Active Substance: LISINOPRIL
     Indication: HYPERTENSION
     Dosage: ONCE IN EVENING
     Route: 048
  2. TRAMADOL HCL [Concomitant]
     Active Substance: TRAMADOL HYDROCHLORIDE
     Indication: ARTHRITIS
     Dosage: 50 MG EVERY 8 HOURS (WHEN NEEDED)
     Route: 048
  3. PULMICORT FLEX HALER [Concomitant]
     Indication: ASTHMA
     Dosage: 180 MCG VIA INTRANASAL ROUTE
     Route: 045
  4. FELODIPINE. [Suspect]
     Active Substance: FELODIPINE
     Indication: HYPERTENSION
     Dosage: 10 MG ONCE IN EVENING
     Route: 048
     Dates: start: 2000

REACTIONS (2)
  - Product odour abnormal [Unknown]
  - Product taste abnormal [Unknown]
